FAERS Safety Report 9958735 (Version 1)
Quarter: 2014Q1

REPORT INFORMATION
  Report Type: Report from Study
  Country: US (occurrence: US)
  Receive Date: 20140305
  Receipt Date: 20140305
  Transmission Date: 20141002
  Serious: No
  Sender: FDA-Public Use
  Company Number: US-ABBVIE-13P-163-1103354-00

PATIENT
  Age: 68 Year
  Sex: Female

DRUGS (15)
  1. HUMIRA [Suspect]
     Indication: RHEUMATOID ARTHRITIS
     Dates: start: 20130501
  2. REGULAR INSULIN [Concomitant]
     Indication: DIABETES MELLITUS
  3. LANTUS [Concomitant]
     Indication: DIABETES MELLITUS
     Dosage: 50 UNITS AT BEDTIME
  4. SYNTHROID [Concomitant]
     Indication: THYROID DISORDER
     Dosage: 75MCG DAILY
  5. CALAN [Concomitant]
     Indication: CARDIAC DISORDER
     Dosage: 240MG AT BEDTIME
  6. LISINOPRIL [Concomitant]
     Indication: HYPERTENSION
     Dosage: 40MG IN AM AND 20MG AT BEDTIME
     Dates: start: 1990
  7. GABAPENTIN [Concomitant]
     Indication: DIABETES MELLITUS
  8. PULMICORT [Concomitant]
     Indication: ASTHMA
  9. MAXAIR [Concomitant]
     Indication: ASTHMA
     Dosage: AM AND PM
  10. NASONEX [Concomitant]
     Indication: HYPERSENSITIVITY
     Dosage: 2-3 TIMES PER WEEK
     Route: 045
  11. FOLIC ACID [Concomitant]
     Indication: RHEUMATOID ARTHRITIS
     Dosage: 1MG DAILY
  12. METHOTREXATE [Concomitant]
     Indication: RHEUMATOID ARTHRITIS
  13. BABY ASPIRIN [Concomitant]
     Indication: PRODUCT USED FOR UNKNOWN INDICATION
     Dosage: DAILY
     Route: 048
  14. HYDROCHLOROTHIAZIDE [Concomitant]
     Indication: BLOOD PRESSURE ABNORMAL
     Dosage: 25MG DAILY
     Route: 048
  15. HYDROCHLOROTHIAZIDE [Concomitant]
     Indication: FLUID RETENTION

REACTIONS (1)
  - Skin discolouration [Not Recovered/Not Resolved]
